FAERS Safety Report 6201267-X (Version None)
Quarter: 2009Q2

REPORT INFORMATION
  Report Type: 
  Country: None (occurrence: None)
  Receive Date: 20090519
  Receipt Date: 20090411
  Transmission Date: 20091009
  Serious: Yes (Hospitalization)
  Sender: FDA-Public Use
  Company Number: 2009S1006623

PATIENT
  Age: 37 Year
  Sex: Female

DRUGS (1)
  1. BISOPROLOL FUMARATE AND HYDROCHLOROTHIAZIDE TABLETS (BISELECT /0116610 [Suspect]
     Indication: INTENTIONAL OVERDOSE
     Dosage: ONCE; ORAL
     Route: 048
     Dates: start: 20090411, end: 20090411

REACTIONS (5)
  - BRADYCARDIA [None]
  - HYPOTENSION [None]
  - INTENTIONAL OVERDOSE [None]
  - SUICIDAL IDEATION [None]
  - TRANSAMINASES INCREASED [None]
